FAERS Safety Report 23426330 (Version 3)
Quarter: 2024Q2

REPORT INFORMATION
  Report Type: Spontaneous
  Country: US (occurrence: US)
  Receive Date: 20240122
  Receipt Date: 20240522
  Transmission Date: 20240716
  Serious: Yes (Hospitalization)
  Sender: FDA-Public Use
  Company Number: US-BRISTOL-MYERS SQUIBB COMPANY-2024-010005

PATIENT
  Age: 71 Year
  Sex: Male

DRUGS (1)
  1. REVLIMID [Suspect]
     Active Substance: LENALIDOMIDE
     Indication: Plasma cell myeloma
     Dosage: ONCE IN A DAY FOR 14 DAYS AND 7 DAYS OFF
     Route: 048

REACTIONS (8)
  - Visual impairment [Unknown]
  - Dysphonia [Unknown]
  - Irritability [Unknown]
  - Hypoaesthesia [Unknown]
  - Emphysema [Unknown]
  - Product dose omission issue [Unknown]
  - Mood swings [Unknown]
  - Off label use [Unknown]
